FAERS Safety Report 7224903-8 (Version None)
Quarter: 2011Q1

REPORT INFORMATION
  Report Type: 
  Country: None (occurrence: None)
  Receive Date: 20110103
  Receipt Date: 20101228
  Transmission Date: 20110831
  Serious: Yes (Death)
  Sender: FDA-Public Use
  Company Number: 2010SP066383

PATIENT
  Age: 63 Year
  Sex: Female

DRUGS (2)
  1. TEMODAL [Suspect]
     Indication: GLIOBLASTOMA MULTIFORME
     Dosage: 75 MG/M2; QD; PO
     Route: 048
     Dates: start: 20101028, end: 20101211
  2. BAKTAR [Concomitant]

REACTIONS (2)
  - MENINGITIS CRYPTOCOCCAL [None]
  - APHAGIA [None]
